FAERS Safety Report 15568979 (Version 4)
Quarter: 2018Q4

REPORT INFORMATION
  Report Type: Spontaneous
  Country: PL (occurrence: PL)
  Receive Date: 20181031
  Receipt Date: 20181218
  Transmission Date: 20190205
  Serious: Yes (Hospitalization, Other)
  Sender: FDA-Public Use
  Company Number: PL-BRISTOL-MYERS SQUIBB COMPANY-BMS-2018-099552

PATIENT
  Age: 68 Year
  Sex: Female

DRUGS (9)
  1. INSULIN BOVINE [Concomitant]
     Indication: PRODUCT USED FOR UNKNOWN INDICATION
     Dosage: 36 IU, QD
     Route: 065
  2. DICLOFENAC [Concomitant]
     Active Substance: DICLOFENAC
     Indication: MUSCULOSKELETAL PAIN
     Dosage: UNK UNK, QD
     Route: 065
  3. INSULIN BOVINE [Concomitant]
     Indication: TYPE 2 DIABETES MELLITUS
     Dosage: 64 IU, QD
     Route: 065
  4. METFORMIN HYDROCHLORIDE. [Suspect]
     Active Substance: METFORMIN HYDROCHLORIDE
     Indication: TYPE 2 DIABETES MELLITUS
     Dosage: 3 G, QD
     Route: 048
  5. ASPIRIN                            /00002701/ [Concomitant]
     Active Substance: ASPIRIN
     Indication: DIABETES MELLITUS
     Dosage: 75 MG, QD
     Route: 065
  6. ROSUVASTATIN. [Concomitant]
     Active Substance: ROSUVASTATIN
     Indication: DIABETES MELLITUS
     Dosage: 10 MG, QD
     Route: 065
  7. INSULIN ISOPHANE BW [Concomitant]
     Indication: DIABETES MELLITUS
     Dosage: 1 DF, BID
     Route: 065
  8. AMOXICILLIN TRIHYDRATE [Suspect]
     Active Substance: AMOXICILLIN
     Indication: PHARYNGITIS
     Dosage: 2 G, UNK
     Route: 065
  9. GLUCOSE [Concomitant]
     Active Substance: DEXTROSE
     Indication: PRODUCT USED FOR UNKNOWN INDICATION
     Dosage: 1 DF, UNK
     Route: 042

REACTIONS (14)
  - Vomiting [Recovered/Resolved]
  - Renal cyst [Recovering/Resolving]
  - Overdose [Unknown]
  - Anuria [Recovering/Resolving]
  - Abdominal pain [Recovered/Resolved]
  - Renal failure [Recovered/Resolved]
  - Asthenia [Recovered/Resolved]
  - Lactic acidosis [Recovering/Resolving]
  - Chest pain [Recovering/Resolving]
  - Metabolic acidosis [Recovering/Resolving]
  - Blood pressure decreased [Recovering/Resolving]
  - Blood potassium increased [Recovered/Resolved]
  - Nausea [Recovering/Resolving]
  - Amylase increased [Recovered/Resolved]
